FAERS Safety Report 10186378 (Version 1)
Quarter: 2014Q2

REPORT INFORMATION
  Report Type: Spontaneous
  Country: US (occurrence: US)
  Receive Date: 20140521
  Receipt Date: 20140521
  Transmission Date: 20141212
  Serious: No
  Sender: FDA-Public Use
  Company Number: US-ASTRAZENECA-2013SE64694

PATIENT
  Age: 18 Year
  Sex: Female
  Weight: 59.4 kg

DRUGS (2)
  1. PULMICORT FLEXAHALER [Suspect]
     Indication: ASTHMA
     Dosage: 180 MCG 2 PUFFS BID
     Route: 055
     Dates: start: 20130816, end: 20130818
  2. PULMICORT FLEXAHALER [Suspect]
     Indication: ASTHMA
     Route: 055

REACTIONS (4)
  - Lung disorder [Unknown]
  - Heart rate irregular [Unknown]
  - Swollen tongue [Unknown]
  - Oropharyngeal pain [Recovered/Resolved with Sequelae]
